FAERS Safety Report 16717323 (Version 1)
Quarter: 2019Q3

REPORT INFORMATION
  Report Type: Spontaneous
  Country: DE (occurrence: DE)
  Receive Date: 20190819
  Receipt Date: 20190819
  Transmission Date: 20191005
  Serious: Yes (Hospitalization)
  Sender: FDA-Public Use
  Company Number: PHHY2019DE190946

PATIENT
  Sex: Male
  Weight: 67.9 kg

DRUGS (8)
  1. ATORVASTATIN [Concomitant]
     Active Substance: ATORVASTATIN
     Indication: PRODUCT USED FOR UNKNOWN INDICATION
     Dosage: 40 MG, QD (2 IN THE EVENING)
     Route: 065
  2. MARCUMAR [Concomitant]
     Active Substance: PHENPROCOUMON
     Indication: PRODUCT USED FOR UNKNOWN INDICATION
     Dosage: UNK (ACCORDING INR)
     Route: 065
  3. ENTRESTO [Suspect]
     Active Substance: SACUBITRIL\VALSARTAN
     Indication: CARDIAC FAILURE
     Dosage: 200 MG, BID (1 IN THE MORNING, 1 IN THE EVENING)
     Route: 048
     Dates: end: 20190723
  4. TOREM [Suspect]
     Active Substance: TORSEMIDE
     Indication: PRODUCT USED FOR UNKNOWN INDICATION
     Dosage: 10 MG, BID (2 IN THE MORNING, 1 AT NOON)
     Route: 065
  5. CARVEDILOL. [Concomitant]
     Active Substance: CARVEDILOL
     Indication: PRODUCT USED FOR UNKNOWN INDICATION
     Dosage: 12.5 MG, BID (1 IN THE MORNING, 1 IN THE EVENING)
     Route: 065
  6. ENTRESTO [Suspect]
     Active Substance: SACUBITRIL\VALSARTAN
     Dosage: 200 MG, BID (0.5 IN THE MORNING, 0.5 IN THE EVENING)
     Route: 048
     Dates: start: 20190724, end: 20190729
  7. SPIRONOLACTONE. [Suspect]
     Active Substance: SPIRONOLACTONE
     Indication: PRODUCT USED FOR UNKNOWN INDICATION
     Dosage: 50 OT, QD (1 IN THE MORNING)
     Route: 065
  8. PANTOZOL [Concomitant]
     Active Substance: PANTOPRAZOLE SODIUM
     Indication: PRODUCT USED FOR UNKNOWN INDICATION
     Dosage: 20 MG, QD (1 IN THE MORNING)
     Route: 065

REACTIONS (5)
  - Hypovolaemia [Recovered/Resolved with Sequelae]
  - Acute kidney injury [Recovered/Resolved with Sequelae]
  - Wrong technique in product usage process [Unknown]
  - Acute kidney injury [Recovered/Resolved with Sequelae]
  - Hypovolaemia [Recovered/Resolved with Sequelae]

NARRATIVE: CASE EVENT DATE: 20190708
